FAERS Safety Report 17043606 (Version 1)
Quarter: 2019Q4

REPORT INFORMATION
  Report Type: Spontaneous
  Country: US (occurrence: US)
  Receive Date: 20191118
  Receipt Date: 20191118
  Transmission Date: 20200122
  Serious: No
  Sender: FDA-Public Use
  Company Number: US-PFIZER INC-2019494371

PATIENT
  Age: 84 Year
  Sex: Female

DRUGS (1)
  1. CARDURA [Suspect]
     Active Substance: DOXAZOSIN MESYLATE
     Indication: BLOOD PRESSURE ABNORMAL
     Dosage: 2.5 MG, UNK (TO BE TAKEN IN THE EVENING TO KEEP HER BLOOD PRESSURE DOWN FOR THE NIGH)
     Route: 048

REACTIONS (1)
  - Heart rate increased [Unknown]
